FAERS Safety Report 7905159-7 (Version None)
Quarter: 2011Q4

REPORT INFORMATION
  Report Type: 
  Country: None (occurrence: None)
  Receive Date: 20111109
  Receipt Date: 20111101
  Transmission Date: 20120403
  Serious: Yes (Other)
  Sender: FDA-Public Use
  Company Number: US-BAYER-2011-107014

PATIENT
  Age: 50 Year
  Sex: Female

DRUGS (5)
  1. AVELOX [Suspect]
     Indication: UPPER RESPIRATORY TRACT INFECTION
     Dosage: 400 MG, QD
     Route: 048
     Dates: start: 20111031, end: 20111031
  2. AMLODIPINE BESYLATE [Concomitant]
     Dosage: UNK
  3. PULMICORT [Concomitant]
  4. VENTOLIN [Concomitant]
  5. THEOPHYLLINE [Concomitant]

REACTIONS (6)
  - NAUSEA [None]
  - URTICARIA [None]
  - HEADACHE [None]
  - VOMITING [None]
  - HYPERSENSITIVITY [None]
  - DIARRHOEA [None]
